FAERS Safety Report 8888698 (Version 1)
Quarter: 2012Q4

REPORT INFORMATION
  Report Type: 
  Country: US (occurrence: US)
  Receive Date: 20121106
  Receipt Date: 20121106
  Transmission Date: 20130627
  Serious: Yes (Other)
  Sender: FDA-Public Use
  Company Number: US-BRISTOL-MYERS SQUIBB COMPANY-17029737

PATIENT
  Age: 17 Year
  Sex: Female

DRUGS (2)
  1. LYSODREN [Suspect]
     Indication: ADRENAL CARCINOMA
     Dosage: Stopped and increased to max of 4g/day
Interrupted and then restarted
     Dates: start: 20120427
  2. BACTRIM [Concomitant]

REACTIONS (3)
  - Malignant neoplasm progression [Unknown]
  - Dermatitis allergic [Recovered/Resolved]
  - Hypotension [Recovered/Resolved]
